FAERS Safety Report 14893302 (Version 1)
Quarter: 2018Q2

REPORT INFORMATION
  Report Type: Spontaneous
  Country: US (occurrence: US)
  Receive Date: 20180514
  Receipt Date: 20180514
  Transmission Date: 20180711
  Serious: Yes (Hospitalization, Other)
  Sender: FDA-Public Use
  Company Number: US-ELI_LILLY_AND_COMPANY-US201805001480

PATIENT
  Age: 58 Year
  Sex: Female

DRUGS (4)
  1. HUMALOG [Suspect]
     Active Substance: INSULIN LISPRO
     Indication: TYPE 1 DIABETES MELLITUS
     Dosage: UNK, PRN
     Route: 058
  2. HUMALOG [Suspect]
     Active Substance: INSULIN LISPRO
     Indication: DIABETES MELLITUS
     Dosage: UNK, UNKNOWN
     Route: 065
  3. TRESIBA [Suspect]
     Active Substance: INSULIN DEGLUDEC
     Indication: PRODUCT USED FOR UNKNOWN INDICATION
     Dosage: UNK, UNKNOWN
     Route: 065
  4. LANTUS [Concomitant]
     Active Substance: INSULIN GLARGINE
     Indication: TYPE 1 DIABETES MELLITUS
     Dosage: 5 U, BID
     Dates: start: 201801

REACTIONS (13)
  - Panic attack [Recovered/Resolved]
  - Thyroid disorder [Unknown]
  - Blood glucose increased [Not Recovered/Not Resolved]
  - Feeding disorder [Unknown]
  - Blood glucose decreased [Not Recovered/Not Resolved]
  - White blood cell count decreased [Unknown]
  - Malaise [Unknown]
  - Ketoacidosis [Recovered/Resolved]
  - Lower respiratory tract infection bacterial [Unknown]
  - Weight decreased [Recovering/Resolving]
  - Diabetes mellitus [Not Recovered/Not Resolved]
  - Lethargy [Unknown]
  - Skin mass [Unknown]

NARRATIVE: CASE EVENT DATE: 201801
